FAERS Safety Report 4421672-1 (Version None)
Quarter: 2004Q3

REPORT INFORMATION
  Report Type: 
  Country: None (occurrence: None)
  Receive Date: 20040804
  Receipt Date: 20040729
  Transmission Date: 20050211
  Serious: Yes (Hospitalization)
  Sender: FDA-Public Use
  Company Number: 200413304BCC

PATIENT
  Age: 73 Year
  Sex: Male
  Weight: 88.4514 kg

DRUGS (4)
  1. ALEVE [Suspect]
     Indication: NASOPHARYNGITIS
     Dosage: 220 MG, QD, ORAL
     Route: 048
     Dates: start: 20040623, end: 20040625
  2. ALEVE [Suspect]
     Indication: PAIN
     Dosage: 220 MG, QD, ORAL
     Route: 048
     Dates: start: 20040623, end: 20040625
  3. ALEVE [Suspect]
     Indication: PYREXIA
     Dosage: 220 MG, QD, ORAL
     Route: 048
     Dates: start: 20040623, end: 20040625
  4. ASPIRIN [Concomitant]

REACTIONS (2)
  - DRUG EFFECT DECREASED [None]
  - PNEUMONIA [None]
